FAERS Safety Report 7296527-8 (Version None)
Quarter: 2011Q1

REPORT INFORMATION
  Report Type: 
  Country: None (occurrence: None)
  Receive Date: 20110216
  Receipt Date: 20110203
  Transmission Date: 20110831
  Serious: Yes (Other)
  Sender: FDA-Public Use
  Company Number: PHHY2010CA16427

PATIENT
  Sex: Male

DRUGS (3)
  1. SANDOSTATIN LAR [Suspect]
     Indication: ACROMEGALY
     Dosage: 20 MG, QMO
     Route: 030
     Dates: start: 20100217, end: 20100317
  2. NOVORAPID [Concomitant]
  3. SANDOSTATIN LAR [Suspect]
     Dosage: 10 MG, UNK
     Route: 030

REACTIONS (11)
  - INJECTION SITE HAEMORRHAGE [None]
  - BLOOD GLUCOSE DECREASED [None]
  - ARTHRALGIA [None]
  - INJECTION SITE PAIN [None]
  - DIARRHOEA [None]
  - AMNESIA [None]
  - WEIGHT INCREASED [None]
  - BLOOD GLUCOSE FLUCTUATION [None]
  - OEDEMA PERIPHERAL [None]
  - HYPERHIDROSIS [None]
  - SOMNOLENCE [None]
